FAERS Safety Report 8758717 (Version 1)
Quarter: 2012Q4

REPORT INFORMATION
  Report Type: Spontaneous
  Country: US (occurrence: None)
  Receive Date: 20120828
  Receipt Date: 20120828
  Transmission Date: 20130627
  Serious: Yes (Hospitalization, Other)
  Sender: FDA-Public Use
  Company Number: None

PATIENT
  Age: 48 Year
  Sex: Male

DRUGS (1)
  1. COPAXONE [Suspect]
     Indication: MS
     Route: 058

REACTIONS (4)
  - Skin reaction [None]
  - Urticaria [None]
  - Pharyngeal oedema [None]
  - Lymphadenopathy [None]
